FAERS Safety Report 12684939 (Version 2)
Quarter: 2016Q3

REPORT INFORMATION
  Report Type: Spontaneous
  Country: SE (occurrence: SE)
  Receive Date: 20160825
  Receipt Date: 20160909
  Transmission Date: 20161109
  Serious: Yes (Other)
  Sender: FDA-Public Use
  Company Number: SE-JNJFOC-20160815168

PATIENT
  Sex: Male

DRUGS (4)
  1. SIMPONI [Suspect]
     Active Substance: GOLIMUMAB
     Indication: RHEUMATOID ARTHRITIS
     Route: 058
     Dates: start: 201607
  2. AZATHIOPRIN [Suspect]
     Active Substance: AZATHIOPRINE
     Indication: PRODUCT USED FOR UNKNOWN INDICATION
     Route: 065
     Dates: end: 201502
  3. SALAZOPYRIN [Suspect]
     Active Substance: SULFASALAZINE
     Indication: PRODUCT USED FOR UNKNOWN INDICATION
     Route: 065
     Dates: end: 20160122
  4. SIMPONI [Suspect]
     Active Substance: GOLIMUMAB
     Indication: RHEUMATOID ARTHRITIS
     Route: 058
     Dates: start: 20120903, end: 2016

REACTIONS (9)
  - Blood pressure increased [Unknown]
  - Herpes zoster [Unknown]
  - Bladder obstruction [Not Recovered/Not Resolved]
  - Thirst [Unknown]
  - Rheumatoid arthritis [Unknown]
  - Renal injury [Unknown]
  - Bladder disorder [Not Recovered/Not Resolved]
  - Loss of libido [Unknown]
  - Headache [Unknown]

NARRATIVE: CASE EVENT DATE: 2015
